FAERS Safety Report 8366086-7 (Version None)
Quarter: 2012Q2

REPORT INFORMATION
  Report Type: 
  Country: None (occurrence: None)
  Receive Date: 20120517
  Receipt Date: 20120508
  Transmission Date: 20120825
  Serious: Yes (Death)
  Sender: FDA-Public Use
  Company Number: US-ELI_LILLY_AND_COMPANY-US_030796588

PATIENT

DRUGS (4)
  1. BENADRYL [Concomitant]
     Dosage: UNK, UNKNOWN
     Route: 064
  2. PROZAC [Suspect]
     Dosage: 40 UNK, UNK
  3. PROZAC [Suspect]
     Indication: DEPRESSION
     Dosage: 20 MG, QD
     Route: 064
     Dates: start: 19960101
  4. CODEINE SULFATE [Concomitant]
     Dosage: UNK, UNKNOWN
     Route: 064
     Dates: start: 20020715, end: 20020728

REACTIONS (2)
  - STILLBIRTH [None]
  - FOETAL EXPOSURE DURING PREGNANCY [None]
